FAERS Safety Report 21231410 (Version 1)
Quarter: 2022Q3

REPORT INFORMATION
  Report Type: Spontaneous
  Country: CA (occurrence: CA)
  Receive Date: 20220819
  Receipt Date: 20220819
  Transmission Date: 20221027
  Serious: Yes (Hospitalization)
  Sender: FDA-Public Use
  Company Number: CA-AUROBINDO-AUR-APL-2022-033031

PATIENT
  Age: 3 Year
  Sex: Male
  Weight: 15 kg

DRUGS (1)
  1. AMOXICILLIN [Suspect]
     Active Substance: AMOXICILLIN
     Indication: Otitis media acute
     Dosage: 675 MILLIGRAM, TWO TIMES A DAY
     Route: 048

REACTIONS (12)
  - General physical health deterioration [Recovered/Resolved]
  - Arthralgia [Recovered/Resolved]
  - Lip swelling [Recovered/Resolved]
  - Mobility decreased [Recovered/Resolved]
  - Oedema peripheral [Recovered/Resolved]
  - Peripheral swelling [Recovered/Resolved]
  - Pyrexia [Recovered/Resolved]
  - Rash erythematous [Recovered/Resolved]
  - Rash macular [Recovered/Resolved]
  - Rash pruritic [Recovered/Resolved]
  - Serum sickness [Recovered/Resolved]
  - Urticaria [Recovered/Resolved]
